FAERS Safety Report 7834511-3 (Version None)
Quarter: 2011Q4

REPORT INFORMATION
  Report Type: 
  Country: None (occurrence: None)
  Receive Date: 20111024
  Receipt Date: 20111019
  Transmission Date: 20120403
  Serious: Yes (Other)
  Sender: FDA-Public Use
  Company Number: GB-B.I. PHARMACEUTICALS,INC./RIDGEFIELD-2011-UK-00836UK

PATIENT
  Age: 64 Year
  Sex: Male
  Weight: 79 kg

DRUGS (3)
  1. PRADAXA [Suspect]
     Indication: THROMBOSIS PROPHYLAXIS
     Dosage: 220 MG
     Route: 048
     Dates: start: 20110712, end: 20110720
  2. SIMVASTATIN [Concomitant]
     Dosage: 20 MG
  3. NAPROXEN [Concomitant]
     Dosage: 1000 MG

REACTIONS (3)
  - HAEMATOMA [None]
  - CONTUSION [None]
  - OEDEMA PERIPHERAL [None]
